FAERS Safety Report 26173413 (Version 1)
Quarter: 2025Q4

REPORT INFORMATION
  Report Type: Spontaneous
  Country: TW (occurrence: TW)
  Receive Date: 20251218
  Receipt Date: 20251218
  Transmission Date: 20260117
  Serious: Yes (Other)
  Sender: ROCHE
  Company Number: TW-ROCHE-10000455534

PATIENT
  Age: 27 Year
  Sex: Female

DRUGS (9)
  1. TECENTRIQ [Suspect]
     Active Substance: ATEZOLIZUMAB
     Indication: Lung adenocarcinoma
     Dosage: 4 CYCLES
  2. AVASTIN [Suspect]
     Active Substance: BEVACIZUMAB
     Indication: Lung adenocarcinoma
     Dosage: UNKNOWN DOSE/UNIT
  3. TEPOTINIB [Suspect]
     Active Substance: TEPOTINIB
     Indication: Lung adenocarcinoma
  4. PEMETREXED [Suspect]
     Active Substance: PEMETREXED
     Indication: Lung adenocarcinoma
     Dosage: UNKNOWN DOSE/UNIT
  5. OSIMERTINIB [Suspect]
     Active Substance: OSIMERTINIB
     Indication: Lung adenocarcinoma
     Dosage: UNKNOWN DOSE/UNIT
  6. OSIMERTINIB [Suspect]
     Active Substance: OSIMERTINIB
     Dosage: UNKNOWN DOSE/UNIT
  7. OSIMERTINIB [Suspect]
     Active Substance: OSIMERTINIB
     Dosage: UNKNOWN DOSE/UNIT
  8. SAVOLITINIB [Suspect]
     Active Substance: SAVOLITINIB
     Indication: Adenocarcinoma
     Dates: start: 20231127
  9. CARBOPLATIN [Suspect]
     Active Substance: CARBOPLATIN
     Indication: Lung adenocarcinoma

REACTIONS (3)
  - Off label use [Unknown]
  - Disease progression [Unknown]
  - Metastases to liver [Unknown]
